FAERS Safety Report 9118325 (Version 2)
Quarter: 2013Q1

REPORT INFORMATION
  Report Type: Spontaneous
  Country: GB (occurrence: None)
  Receive Date: 20130128
  Receipt Date: 20130222
  Transmission Date: 20140127
  Serious: Yes (Death)
  Sender: FDA-Public Use
  Company Number: 2013MPI00024

PATIENT
  Age: 68 Year
  Sex: Male

DRUGS (13)
  1. ADCETRIS [Suspect]
     Indication: ANAPLASTIC LARGE-CELL LYMPHOMA
     Route: 042
     Dates: start: 20121218, end: 20121218
  2. ADCETRIS [Suspect]
     Indication: RECURRENT CANCER
     Route: 042
     Dates: start: 20121218, end: 20121218
  3. ADCETRIS [Suspect]
     Indication: REFRACTORY CANCER
     Route: 042
     Dates: start: 20121218, end: 20121218
  4. IPRATROPIUM (LPRATROPIUM BROMIDE) [Concomitant]
  5. SERETIDE (FLUTICASONE PROPIONTE, SALMETEROL) [Concomitant]
  6. ACICLOVIR (ACICLOVIR SODIUM) [Concomitant]
  7. PREDNISOLONE (PREDNISOLONE ACETATE) [Concomitant]
  8. ALLOPURINOL (ALLIPURINOL) [Concomitant]
  9. CARBOCISTEINE (CARBOCISTINE) [Concomitant]
  10. DIGOXIN (DIGOXIN) [Concomitant]
  11. FINASTERIDE (FINASTERIDE) [Concomitant]
  12. TAMSULOSIN (TAMSULOSIN) [Concomitant]
  13. TAZON (PIPERCILLIN SODIUM, TAZOBACTAM SODIUM) [Concomitant]

REACTIONS (4)
  - Chronic obstructive pulmonary disease [None]
  - Neutropenic sepsis [None]
  - Infection [None]
  - Blood creatinine increased [None]
